FAERS Safety Report 4430471-6 (Version None)
Quarter: 2004Q3

REPORT INFORMATION
  Report Type: 
  Country: None (occurrence: None)
  Receive Date: 20040721
  Receipt Date: 20040506
  Transmission Date: 20050211
  Serious: Yes (Hospitalization)
  Sender: FDA-Public Use
  Company Number: WAES 0405USA00402

PATIENT
  Age: 82 Year
  Sex: Female

DRUGS (5)
  1. VIOXX [Suspect]
     Dosage: 50 MG/DAILY/PO
     Route: 048
  2. LASIX [Concomitant]
  3. SYNTHROID [Concomitant]
  4. DIGOXIN [Concomitant]
  5. POTASSIUM [Concomitant]

REACTIONS (1)
  - PANCYTOPENIA [None]
